FAERS Safety Report 10236668 (Version 1)
Quarter: 2014Q2

REPORT INFORMATION
  Report Type: Spontaneous
  Country: DE (occurrence: DE)
  Receive Date: 20140613
  Receipt Date: 20140613
  Transmission Date: 20141212
  Serious: Yes (Hospitalization)
  Sender: FDA-Public Use
  Company Number: PHHY2014DE070373

PATIENT
  Age: 29 Year
  Sex: Female

DRUGS (8)
  1. CLOZAPINE [Suspect]
     Indication: SCHIZOPHRENIA
     Dosage: 250 MG, PER DAY
  2. CLOZAPINE [Interacting]
     Dosage: 250 MG (50MG-0-200MG-0), PER DAY
  3. CLOZAPINE [Interacting]
     Dosage: 200 MG, PER DAY
  4. CLOZAPINE [Interacting]
     Dosage: 150 MG, DAILY
  5. FLUVOXAMINE [Interacting]
     Indication: SCHIZOPHRENIA
     Dosage: 25 MG, PER DAY
  6. FLUVOXAMINE [Interacting]
     Dosage: 50 MG, QD
  7. FLUVOXAMINE [Interacting]
     Dosage: 25 MG, PER DAY
  8. OLANZAPINE [Interacting]
     Indication: SLEEP DISORDER
     Dosage: 20 MG, QD

REACTIONS (12)
  - Obsessive-compulsive disorder [Recovered/Resolved]
  - Disturbance in attention [Recovered/Resolved]
  - Bradyphrenia [Recovered/Resolved]
  - Blunted affect [Recovered/Resolved]
  - Obsessive thoughts [Recovered/Resolved]
  - Mental disorder [Recovered/Resolved]
  - Overweight [Unknown]
  - Vision blurred [Recovered/Resolved]
  - Constipation [Recovered/Resolved]
  - Dry mouth [Recovered/Resolved]
  - Drug level above therapeutic [Recovered/Resolved]
  - Drug interaction [Unknown]
